FAERS Safety Report 17770444 (Version 1)
Quarter: 2020Q2

REPORT INFORMATION
  Report Type: Spontaneous
  Country: US (occurrence: US)
  Receive Date: 20200512
  Receipt Date: 20200512
  Transmission Date: 20200714
  Serious: Yes (Other)
  Sender: FDA-Public Use
  Company Number: NVSC2020US127956

PATIENT
  Age: 76 Year
  Sex: Female
  Weight: 60 kg

DRUGS (1)
  1. BEOVU [Suspect]
     Active Substance: BROLUCIZUMAB-DBLL
     Indication: NEOVASCULAR AGE-RELATED MACULAR DEGENERATION
     Dosage: 6 MG (Q4 WEEKS X 3 DOSES ANF THEN Q8 WEEKS (GETTING READY FOR 4TH DOSE)
     Route: 047
     Dates: start: 20200108, end: 20200304

REACTIONS (2)
  - Vitreous floaters [Not Recovered/Not Resolved]
  - Retinal perivascular sheathing [Recovered/Resolved]

NARRATIVE: CASE EVENT DATE: 20200415
